FAERS Safety Report 22031619 (Version 1)
Quarter: 2023Q1

REPORT INFORMATION
  Report Type: Spontaneous
  Country: US (occurrence: US)
  Receive Date: 20230224
  Receipt Date: 20230224
  Transmission Date: 20230418
  Serious: No
  Sender: FDA-Public Use
  Company Number: US-009507513-2302USA005289

PATIENT
  Age: 43 Year
  Sex: Female

DRUGS (4)
  1. CUBICIN [Suspect]
     Active Substance: DAPTOMYCIN
     Indication: Breast cellulitis
     Dosage: 6 MG/KG DAILY
     Route: 042
  2. CUBICIN [Suspect]
     Active Substance: DAPTOMYCIN
     Indication: Evidence based treatment
  3. INVANZ [Concomitant]
     Active Substance: ERTAPENEM SODIUM
     Indication: Breast cellulitis
     Dosage: 1 G DAILY
     Route: 042
  4. INVANZ [Concomitant]
     Active Substance: ERTAPENEM SODIUM
     Indication: Evidence based treatment

REACTIONS (1)
  - Product use in unapproved indication [Unknown]
